FAERS Safety Report 13330474 (Version 1)
Quarter: 2017Q1

REPORT INFORMATION
  Report Type: Spontaneous
  Country: FR (occurrence: FR)
  Receive Date: 20170314
  Receipt Date: 20170314
  Transmission Date: 20170428
  Serious: Yes (Hospitalization)
  Sender: FDA-Public Use
  Company Number: FR-CONCORDIA PHARMACEUTICALS INC.-GSH201703-001639

PATIENT
  Age: 44 Year
  Sex: Female

DRUGS (8)
  1. ESOMEPRAZOLE [Concomitant]
     Active Substance: ESOMEPRAZOLE
  2. DIPROSONE [Concomitant]
     Active Substance: BETAMETHASONE DIPROPIONATE
  3. IMETH [Suspect]
     Active Substance: METHOTREXATE SODIUM
     Indication: SYSTEMIC LUPUS ERYTHEMATOSUS
     Route: 048
  4. LYRICA [Concomitant]
     Active Substance: PREGABALIN
  5. PARACETAMOL [Concomitant]
     Active Substance: ACETAMINOPHEN
  6. PLAQUENIL [Suspect]
     Active Substance: HYDROXYCHLOROQUINE SULFATE
     Indication: SYSTEMIC LUPUS ERYTHEMATOSUS
     Route: 048
     Dates: start: 1997
  7. SPECIAFOLDINE [Concomitant]
     Active Substance: FOLIC ACID
  8. KARDEGIC [Concomitant]
     Active Substance: ASPIRIN LYSINE

REACTIONS (2)
  - Pancytopenia [Unknown]
  - Axonal neuropathy [Unknown]

NARRATIVE: CASE EVENT DATE: 20150513
